FAERS Safety Report 5770975-7 (Version None)
Quarter: 2008Q2

REPORT INFORMATION
  Report Type: 
  Country: None (occurrence: None)
  Receive Date: 20080613
  Receipt Date: 20080515
  Transmission Date: 20081010
  Serious: No
  Sender: FDA-Public Use
  Company Number: US-ABBOTT-08P-163-0452958-00

PATIENT
  Sex: Male
  Weight: 99.88 kg

DRUGS (5)
  1. HUMIRA [Suspect]
     Indication: COLITIS ULCERATIVE
     Route: 058
     Dates: start: 20080301, end: 20080507
  2. HUMIRA [Suspect]
     Route: 058
     Dates: start: 20080514
  3. PREDNISONE TAB [Concomitant]
     Indication: COLITIS ULCERATIVE
     Route: 048
     Dates: start: 20080101, end: 20080513
  4. PREDNISONE TAB [Concomitant]
     Route: 048
     Dates: start: 20080514
  5. OLMESARTAN MEDOXOMIL [Concomitant]
     Indication: COLITIS ULCERATIVE
     Route: 048

REACTIONS (2)
  - ACCIDENTAL EXPOSURE [None]
  - DIARRHOEA HAEMORRHAGIC [None]
